FAERS Safety Report 4465345-8 (Version None)
Quarter: 2004Q4

REPORT INFORMATION
  Report Type: 
  Country: None (occurrence: None)
  Receive Date: 20041001
  Receipt Date: 20041001
  Transmission Date: 20050328
  Serious: Yes (Life-Threatening)
  Sender: FDA-Public Use
  Company Number: None

PATIENT
  Age: 33 Year
  Sex: Female
  Weight: 136.0791 kg

DRUGS (2)
  1. FLUOXETINE [Suspect]
     Dosage: FLUOXETINE 40MG Q AM
     Dates: start: 20040120, end: 20040406
  2. SEROQUEL [Concomitant]

REACTIONS (3)
  - CONDITION AGGRAVATED [None]
  - DEPRESSIVE SYMPTOM [None]
  - SUICIDAL IDEATION [None]
